FAERS Safety Report 18123734 (Version 1)
Quarter: 2020Q3

REPORT INFORMATION
  Report Type: Spontaneous
  Country: GB (occurrence: GB)
  Receive Date: 20200807
  Receipt Date: 20200807
  Transmission Date: 20201103
  Serious: Yes (Hospitalization)
  Sender: FDA-Public Use
  Company Number: GB-GUERBET-GB-20200104

PATIENT
  Age: 58 Year
  Sex: Male

DRUGS (1)
  1. OPTIRAY [Suspect]
     Active Substance: IOVERSOL
     Indication: DYSPEPSIA
     Route: 042
     Dates: start: 20200630

REACTIONS (4)
  - Nasal congestion [Unknown]
  - Rhinalgia [Unknown]
  - Anaphylactic reaction [Unknown]
  - Sneezing [Unknown]

NARRATIVE: CASE EVENT DATE: 20200630
